FAERS Safety Report 12198237 (Version 1)
Quarter: 2016Q1

REPORT INFORMATION
  Report Type: Spontaneous
  Country: FR (occurrence: None)
  Receive Date: 20160321
  Receipt Date: 20160321
  Transmission Date: 20160526
  Serious: Yes (Other)
  Sender: FDA-Public Use
  Company Number: None

PATIENT
  Age: 110 Year
  Sex: Female
  Weight: 70 kg

DRUGS (1)
  1. ERYTHROMYCINE PROPIONATE 500 ERY GE [Suspect]
     Active Substance: ERYTHROMYCIN PROPIONATE
     Indication: PNEUMONIA
     Route: 048
     Dates: start: 20160311, end: 20160314

REACTIONS (10)
  - Tremor [None]
  - Night sweats [None]
  - Muscular weakness [None]
  - Dysgeusia [None]
  - Swelling face [None]
  - Fatigue [None]
  - Pneumonia [None]
  - Migraine [None]
  - Crying [None]
  - Toxicity to various agents [None]

NARRATIVE: CASE EVENT DATE: 20160314
